FAERS Safety Report 22294874 (Version 1)
Quarter: 2023Q2

REPORT INFORMATION
  Report Type: Spontaneous
  Country: CN (occurrence: None)
  Receive Date: 20230508
  Receipt Date: 20230508
  Transmission Date: 20230722
  Serious: Yes (Hospitalization)
  Sender: FDA-Public Use
  Company Number: CN-ROCHE-3345984

PATIENT
  Age: 50 Year
  Sex: Male
  Weight: 70 kg

DRUGS (2)
  1. VALCYTE [Suspect]
     Active Substance: VALGANCICLOVIR HYDROCHLORIDE
     Indication: Prophylaxis against transplant rejection
     Route: 048
     Dates: start: 20230405, end: 20230412
  2. GANCICLOVIR [Suspect]
     Active Substance: GANCICLOVIR
     Indication: Hepatocellular carcinoma
     Route: 042
     Dates: start: 20230330, end: 20230404

REACTIONS (2)
  - Pyrexia [Recovered/Resolved]
  - Off label use [Unknown]

NARRATIVE: CASE EVENT DATE: 20230330
